FAERS Safety Report 9444105 (Version 1)
Quarter: 2013Q3

REPORT INFORMATION
  Report Type: Spontaneous
  Country: US (occurrence: None)
  Receive Date: 20130806
  Receipt Date: 20130806
  Transmission Date: 20140515
  Serious: Yes (Disabling)
  Sender: FDA-Public Use
  Company Number: None

PATIENT
  Age: 78 Year
  Sex: Female
  Weight: 88.45 kg

DRUGS (8)
  1. PROLIA (DENOSUMAB) [Suspect]
     Indication: OSTEOPOROSIS POSTMENOPAUSAL
     Dosage: 2X PER YEAR INJECTION?ONCE ONLY
     Dates: start: 20130423
  2. SOTALOL [Concomitant]
  3. PRADAXA [Concomitant]
  4. CRESTOR [Concomitant]
  5. DIOVAN [Concomitant]
  6. D3-C-K2 [Concomitant]
  7. ALPHA LIPOIC ACID [Concomitant]
  8. CHELATED MAGNESIUM [Concomitant]

REACTIONS (6)
  - Pain in extremity [None]
  - Groin pain [None]
  - Arthralgia [None]
  - Muscle disorder [None]
  - Dysstasia [None]
  - Gait disturbance [None]
